FAERS Safety Report 7366402-9 (Version None)
Quarter: 2011Q1

REPORT INFORMATION
  Report Type: 
  Country: None (occurrence: None)
  Receive Date: 20110322
  Receipt Date: 20110311
  Transmission Date: 20110831
  Serious: Yes (Life-Threatening)
  Sender: FDA-Public Use
  Company Number: FR-SANOFI-AVENTIS-2011SA013354

PATIENT
  Age: 48 Year
  Sex: Male
  Weight: 71 kg

DRUGS (14)
  1. DILTIAZEM HCL [Suspect]
     Indication: CARDIAC FAILURE
     Route: 065
  2. FLUOROURACIL [Suspect]
     Dosage: DOSE: 400 MG/M2
     Route: 040
  3. CALCIUM FOLINATE [Suspect]
     Dosage: DOSE: RECEIVED HALF THE INITIAL DOSE
     Route: 065
  4. FLUOROURACIL [Suspect]
     Dosage: HALF THE INITIAL DOSE
     Route: 040
  5. FLUOROURACIL [Suspect]
     Dosage: 2400 MG/M2 OVER 46 HOURS.
     Route: 040
  6. OXALIPLATIN [Suspect]
     Dosage: FIRST CYCLE; 85 MG/M2
     Route: 065
  7. CALCIUM FOLINATE [Suspect]
     Dosage: RESUMED FULL DOSE
     Route: 065
  8. FLUOROURACIL [Suspect]
     Dosage: DOSE: RECEIVED HALF THE INITIAL DOSE
     Route: 040
  9. FLUOROURACIL [Suspect]
     Dosage: RESUMED FULL DOSE
     Route: 040
  10. FLUOROURACIL [Suspect]
     Dosage: RESUMED FULL DOSE
     Route: 040
  11. RAMIPRIL [Suspect]
     Route: 065
  12. OXALIPLATIN [Suspect]
     Dosage: DOSE: RECEIVED HALF THE INITIAL DOSE
     Route: 065
  13. OXALIPLATIN [Suspect]
     Dosage: RESUMED FULL DOSE
     Route: 065
  14. CALCIUM FOLINATE [Suspect]
     Dosage: FIRST CYCLE; 200 MG/M2
     Route: 065

REACTIONS (6)
  - CARDIAC FAILURE ACUTE [None]
  - STRESS CARDIOMYOPATHY [None]
  - CHEST PAIN [None]
  - CARDIAC ARREST [None]
  - EJECTION FRACTION ABNORMAL [None]
  - TROPONIN T INCREASED [None]
